FAERS Safety Report 4311922-4 (Version None)
Quarter: 2004Q1

REPORT INFORMATION
  Report Type: 
  Country: None (occurrence: None)
  Receive Date: 20040305
  Receipt Date: 20031204
  Transmission Date: 20041129
  Serious: Yes (Hospitalization, Other)
  Sender: FDA-Public Use
  Company Number: PHEH2003US11145

PATIENT
  Age: 74 Year
  Sex: Male
  Weight: 68 kg

DRUGS (9)
  1. ZOMETA [Suspect]
     Indication: METASTASES TO BONE
     Dosage: 4 MG, ONCE/SINGLE
     Route: 042
     Dates: start: 20031009, end: 20031009
  2. NORVASC [Concomitant]
  3. CASODEX [Concomitant]
  4. LEUPROLIDE ACETATE [Concomitant]
  5. ACIPHEX [Concomitant]
  6. LOPRESSOR [Concomitant]
  7. AMARYL [Concomitant]
  8. LEXAPRO [Concomitant]
  9. ASPIRIN [Concomitant]

REACTIONS (4)
  - BLOOD CREATININE INCREASED [None]
  - BLOOD UREA INCREASED [None]
  - OBSTRUCTIVE UROPATHY [None]
  - RENAL FAILURE ACUTE [None]
